FAERS Safety Report 11317384 (Version 3)
Quarter: 2016Q2

REPORT INFORMATION
  Report Type: Spontaneous
  Country: US (occurrence: US)
  Receive Date: 20150728
  Receipt Date: 20160427
  Transmission Date: 20160815
  Serious: Yes (Other)
  Sender: FDA-Public Use
  Company Number: US-CELGENEUS-USA-2015073487

PATIENT
  Age: 65 Year
  Sex: Male
  Weight: 80.81 kg

DRUGS (2)
  1. REVLIMID [Suspect]
     Active Substance: LENALIDOMIDE
     Route: 048
     Dates: start: 20150614, end: 20150714
  2. REVLIMID [Suspect]
     Active Substance: LENALIDOMIDE
     Indication: PLASMA CELL MYELOMA
     Route: 048
     Dates: start: 201105

REACTIONS (9)
  - Therapeutic response decreased [Unknown]
  - Oedema peripheral [Unknown]
  - Dyspepsia [Unknown]
  - Tremor [Unknown]
  - Hot flush [Unknown]
  - Dyspnoea [Unknown]
  - Tension [Unknown]
  - Full blood count decreased [Unknown]
  - Fatigue [Unknown]

NARRATIVE: CASE EVENT DATE: 20150601
